FAERS Safety Report 10560730 (Version 1)
Quarter: 2014Q4

REPORT INFORMATION
  Report Type: Spontaneous
  Country: GB (occurrence: GB)
  Receive Date: 20141103
  Receipt Date: 20141103
  Transmission Date: 20150529
  Serious: Yes (Other)
  Sender: FDA-Public Use
  Company Number: GB-BRISTOL-MYERS SQUIBB COMPANY-21517354

PATIENT
  Age: 63 Year
  Sex: Female
  Weight: 58.06 kg

DRUGS (1)
  1. KENALOG [Suspect]
     Active Substance: TRIAMCINOLONE ACETONIDE
     Indication: MYALGIA
     Dosage: IN SHOULDER
     Dates: start: 20140903, end: 20140903

REACTIONS (7)
  - Anxiety [Unknown]
  - Heart rate increased [Unknown]
  - Chest discomfort [Unknown]
  - Blood pressure increased [Unknown]
  - Agitation [Unknown]
  - Hyperhidrosis [Unknown]
  - Nausea [Unknown]

NARRATIVE: CASE EVENT DATE: 20140908
